FAERS Safety Report 5956199-9 (Version None)
Quarter: 2008Q4

REPORT INFORMATION
  Report Type: 
  Country: None (occurrence: None)
  Receive Date: 20081112
  Receipt Date: 20081031
  Transmission Date: 20090506
  Serious: Yes (Hospitalization, Other)
  Sender: FDA-Public Use
  Company Number: 08US001105

PATIENT
  Age: 15 Year
  Sex: Male

DRUGS (2)
  1. VALPROIC ACID [Suspect]
     Indication: CONVULSION
  2. TPCH (6-THIOGUANINE, PROCARBAZINE, LOMUSTINE AND HYDROXYUREA) [Concomitant]

REACTIONS (13)
  - ALOPECIA [None]
  - ASPARTATE AMINOTRANSFERASE INCREASED [None]
  - BLOOD LACTATE DEHYDROGENASE ABNORMAL [None]
  - DEEP VEIN THROMBOSIS [None]
  - FEBRILE NEUTROPENIA [None]
  - HAEMOGLOBIN DECREASED [None]
  - INFECTION [None]
  - LEUKOPENIA [None]
  - NAUSEA [None]
  - PNEUMONIA ASPIRATION [None]
  - PULMONARY EMBOLISM [None]
  - STOMATITIS [None]
  - THROMBOCYTOPENIA [None]
